FAERS Safety Report 8512196 (Version 3)
Quarter: 2014Q1

REPORT INFORMATION
  Report Type: Spontaneous
  Country: US (occurrence: US)
  Receive Date: 20120413
  Receipt Date: 20140318
  Transmission Date: 20141002
  Serious: Yes (Hospitalization, Other)
  Sender: FDA-Public Use
  Company Number: US-ASTRAZENECA-2011SE17672

PATIENT
  Age: 61 Year
  Sex: Female
  Weight: 60.3 kg

DRUGS (8)
  1. NEXIUM [Suspect]
     Indication: GASTROOESOPHAGEAL REFLUX DISEASE
     Route: 048
     Dates: start: 2001, end: 2011
  2. NEXIUM [Suspect]
     Indication: GASTROOESOPHAGEAL REFLUX DISEASE
     Route: 048
     Dates: start: 2011
  3. CRESTOR [Suspect]
     Indication: BLOOD CHOLESTEROL INCREASED
     Route: 048
     Dates: start: 2006
  4. FLEXERIL [Concomitant]
     Indication: MUSCLE RELAXANT THERAPY
     Dosage: GENERIC, 10 MG AS REQUIRED.
     Route: 048
     Dates: start: 201308
  5. ALPRAZOLAM [Concomitant]
     Indication: MUSCLE RELAXANT THERAPY
     Dates: start: 1994
  6. ALPRAZOLAM [Concomitant]
     Indication: ANXIETY
     Dates: start: 1994
  7. ALPRAZOLAM [Concomitant]
     Indication: PANIC ATTACK
     Dates: start: 1994
  8. VAGIGEL [Concomitant]
     Indication: HORMONE THERAPY
     Route: 061

REACTIONS (11)
  - Musculoskeletal discomfort [Not Recovered/Not Resolved]
  - Spinal osteoarthritis [Unknown]
  - Osteopenia [Unknown]
  - Regurgitation [Unknown]
  - Gastrooesophageal reflux disease [Not Recovered/Not Resolved]
  - Oesophageal pain [Unknown]
  - Exostosis [Unknown]
  - Diverticulum [Unknown]
  - Memory impairment [Not Recovered/Not Resolved]
  - Off label use [Unknown]
  - Intentional drug misuse [Unknown]
